FAERS Safety Report 18259826 (Version 6)
Quarter: 2020Q4

REPORT INFORMATION
  Report Type: Report from Study
  Country: US (occurrence: US)
  Receive Date: 20200912
  Receipt Date: 20201230
  Transmission Date: 20210113
  Serious: No
  Sender: FDA-Public Use
  Company Number: NVSC2020US249104

PATIENT
  Age: 42 Year
  Sex: Female

DRUGS (1)
  1. COSENTYX [Suspect]
     Active Substance: SECUKINUMAB
     Indication: PSORIATIC ARTHROPATHY
     Dosage: 150 MG, QW
     Route: 058
     Dates: start: 202008

REACTIONS (10)
  - Depressed mood [Recovering/Resolving]
  - COVID-19 [Recovering/Resolving]
  - Nasal congestion [Not Recovered/Not Resolved]
  - Pain [Recovering/Resolving]
  - Cough [Not Recovered/Not Resolved]
  - Nasopharyngitis [Recovering/Resolving]
  - Migraine [Recovering/Resolving]
  - Diarrhoea [Unknown]
  - Bronchitis [Recovered/Resolved]
  - Pyrexia [Recovering/Resolving]

NARRATIVE: CASE EVENT DATE: 202011
